FAERS Safety Report 7733049-1 (Version None)
Quarter: 2011Q3

REPORT INFORMATION
  Report Type: 
  Country: None (occurrence: None)
  Receive Date: 20110907
  Receipt Date: 20110902
  Transmission Date: 20111222
  Serious: Yes (Other)
  Sender: FDA-Public Use
  Company Number: US-PFIZER INC-2011137021

PATIENT
  Sex: Male

DRUGS (1)
  1. CHANTIX [Suspect]
     Indication: SMOKING CESSATION THERAPY
     Dosage: UNK
     Dates: start: 20090301, end: 20090601

REACTIONS (5)
  - MENTAL DISORDER [None]
  - ANXIETY [None]
  - DEPRESSION [None]
  - AGGRESSION [None]
  - SUICIDAL IDEATION [None]
